FAERS Safety Report 5444422-9 (Version None)
Quarter: 2007Q3

REPORT INFORMATION
  Report Type: 
  Country: None (occurrence: None)
  Receive Date: 20070904
  Receipt Date: 20070904
  Transmission Date: 20080115
  Serious: Yes (Other)
  Sender: FDA-Public Use
  Company Number: None

PATIENT
  Age: 90 Year
  Sex: Male

DRUGS (6)
  1. RISPERIDONE [Suspect]
     Indication: DEMENTIA
     Dosage: 0.5 MG EVERY EVENIING PO
     Route: 048
  2. LORAZEPAM [Concomitant]
  3. ASPIRIN [Concomitant]
  4. ARICEPT [Concomitant]
  5. LEVOXYL [Concomitant]
  6. MIRALAX [Concomitant]

REACTIONS (4)
  - ASTHENIA [None]
  - FALL [None]
  - HYPOTHERMIA [None]
  - PNEUMONIA [None]
